FAERS Safety Report 16468405 (Version 2)
Quarter: 2019Q3

REPORT INFORMATION
  Report Type: Spontaneous
  Country: US (occurrence: US)
  Receive Date: 20190624
  Receipt Date: 20190705
  Transmission Date: 20191004
  Serious: No
  Sender: FDA-Public Use
  Company Number: US-KYOWAKIRIN-2019BKK009691

PATIENT

DRUGS (14)
  1. SANCUSO [Suspect]
     Active Substance: GRANISETRON
     Indication: PROPHYLAXIS OF NAUSEA AND VOMITING
     Dosage: PUT ON 24-48 HOURS PRIOR TO CHEMO AND STAYS ON FOR 7 DAYS,PUT A NEW ONE ON AFTER TAKING EACH ONE OFF
     Route: 065
     Dates: start: 201905
  2. 5-FU [FLUOROURACIL] [Concomitant]
     Active Substance: FLUOROURACIL
     Indication: ADENOCARCINOMA PANCREAS
     Dosage: 14 DAYS CYCLES
     Route: 065
     Dates: start: 20190429
  3. LEUCOVORIN CA [Concomitant]
     Active Substance: LEUCOVORIN CALCIUM
     Indication: ADENOCARCINOMA PANCREAS
     Dosage: 14 DAYS CYCLES
     Route: 065
     Dates: start: 20190429
  4. OXYCODONE [Concomitant]
     Active Substance: OXYCODONE
     Dosage: UNKNOWN, Q4H
     Route: 048
  5. IRINOTECAN [Concomitant]
     Active Substance: IRINOTECAN
     Indication: ADENOCARCINOMA PANCREAS
     Dosage: 14 DAYS CYCLES
     Route: 065
     Dates: start: 20190429
  6. EMLA [LIDOCAINE;PRILOCAINE] [Concomitant]
     Indication: PRODUCT USED FOR UNKNOWN INDICATION
     Dosage: USE BEFORE VENIPUNCTURE
     Route: 065
  7. GLUCOPHAGE [Concomitant]
     Active Substance: METFORMIN HYDROCHLORIDE
     Indication: PRODUCT USED FOR UNKNOWN INDICATION
     Dosage: 1 TABLET, 2 TIMES DAILY WITH MEALS
     Route: 048
  8. OXALIPLATIN. [Concomitant]
     Active Substance: OXALIPLATIN
     Indication: ADENOCARCINOMA PANCREAS
     Dosage: 14 DAYS CYCLES
     Route: 065
     Dates: start: 20190429
  9. CREON [Concomitant]
     Active Substance: PANCRELIPASE AMYLASE\PANCRELIPASE LIPASE\PANCRELIPASE PROTEASE
     Indication: PRODUCT USED FOR UNKNOWN INDICATION
     Dosage: 2 CAPSULES
     Route: 048
  10. REFRESH PLUS [Concomitant]
     Active Substance: CARBOXYMETHYLCELLULOSE SODIUM
     Indication: PRODUCT USED FOR UNKNOWN INDICATION
     Dosage: 1 DROP
     Route: 065
  11. SYNTHROID [Concomitant]
     Active Substance: LEVOTHYROXINE SODIUM
     Indication: PRODUCT USED FOR UNKNOWN INDICATION
     Dosage: 150 UG
     Route: 048
  12. ZYPREXA [Concomitant]
     Active Substance: OLANZAPINE
     Indication: PRODUCT USED FOR UNKNOWN INDICATION
     Dosage: 1 TABLET NIGHTLY
     Route: 048
  13. NOVOLOG [Concomitant]
     Active Substance: INSULIN ASPART
     Indication: PRODUCT USED FOR UNKNOWN INDICATION
     Dosage: 1-10 UNITS, 4 TIMES DAILY, BEFORE MEALS AND NIGHTLY
     Route: 058
  14. OXYCODONE [Concomitant]
     Active Substance: OXYCODONE
     Indication: PRODUCT USED FOR UNKNOWN INDICATION
     Dosage: 1 TABLET EVERY 6 HOURS AS NEEDED, MAX. DAILY AMOUNT 40 MG
     Route: 048

REACTIONS (13)
  - Pyrexia [Recovered/Resolved]
  - Diarrhoea [Unknown]
  - Dizziness [Unknown]
  - Wrong technique in product usage process [Unknown]
  - Vomiting [Unknown]
  - Nausea [Not Recovered/Not Resolved]
  - Weight decreased [Unknown]
  - Muscle contracture [Unknown]
  - Anxiety [Unknown]
  - Inappropriate schedule of product administration [Unknown]
  - Therapy partial responder [Unknown]
  - Depression [Unknown]
  - Product adhesion issue [Not Recovered/Not Resolved]

NARRATIVE: CASE EVENT DATE: 2019
